FAERS Safety Report 7487543-1 (Version None)
Quarter: 2011Q1

REPORT INFORMATION
  Report Type: 
  Country: None (occurrence: None)
  Receive Date: 20110309
  Receipt Date: 20101101
  Transmission Date: 20110831
  Serious: No
  Sender: FDA-Public Use
  Company Number: 2010SP058162

PATIENT
  Age: 56 Year
  Sex: Female

DRUGS (5)
  1. GEODON [Concomitant]
  2. KLONOPIN [Concomitant]
  3. SAPHRIS [Suspect]
     Indication: SCHIZOPHRENIA
     Dosage: 5 MF; BID; SBDE, 10 MG; BID; SBDE
     Route: 059
     Dates: start: 20100608
  4. SAPHRIS [Suspect]
     Indication: SCHIZOPHRENIA
     Dosage: 5 MF; BID; SBDE, 10 MG; BID; SBDE
     Route: 059
     Dates: start: 20100323, end: 20100607
  5. SEROQUEL [Concomitant]

REACTIONS (1)
  - TOOTH DISCOLOURATION [None]
